FAERS Safety Report 8769064 (Version 3)
Quarter: 2012Q4

REPORT INFORMATION
  Report Type: Report from Study
  Country: US (occurrence: US)
  Receive Date: 20120905
  Receipt Date: 20120924
  Transmission Date: 20130627
  Serious: Yes (Hospitalization)
  Sender: FDA-Public Use
  Company Number: US-BRISTOL-MYERS SQUIBB COMPANY-16906273

PATIENT
  Age: 49 Year
  Sex: Female
  Weight: 60 kg

DRUGS (1)
  1. ERBITUX [Suspect]
     Indication: PHARYNGEAL CANCER STAGE UNSPECIFIED
     Dosage: 680mg:25Jun12
started at 426mg:2,9,16,23,30,6Aug12-25Jun12
reduced 250mg/m2
     Route: 042
     Dates: start: 20120625, end: 20120813

REACTIONS (2)
  - Pyrexia [Recovered/Resolved]
  - Sinus tachycardia [Recovered/Resolved]
